FAERS Safety Report 16110636 (Version 1)
Quarter: 2019Q1

REPORT INFORMATION
  Report Type: Spontaneous
  Country: US (occurrence: US)
  Receive Date: 20190325
  Receipt Date: 20190325
  Transmission Date: 20190418
  Serious: No
  Sender: FDA-Public Use
  Company Number: US-AUROBINDO-AUR-APU-2018-052839

PATIENT
  Sex: Female
  Weight: 97.51 kg

DRUGS (1)
  1. GABAPENTIN CAPSULES 300 MG [Suspect]
     Active Substance: GABAPENTIN
     Indication: NEURALGIA
     Dosage: 1 DOSAGE FORM, DAILY
     Dates: start: 20181018

REACTIONS (3)
  - Peripheral swelling [Recovered/Resolved]
  - Abdominal discomfort [Recovered/Resolved]
  - Swelling face [Recovered/Resolved]
